FAERS Safety Report 7349360-2 (Version None)
Quarter: 2011Q1

REPORT INFORMATION
  Report Type: 
  Country: None (occurrence: None)
  Receive Date: 20110314
  Receipt Date: 20100826
  Transmission Date: 20110831
  Serious: No
  Sender: FDA-Public Use
  Company Number: US-ABBOTT-10P-163-0668094-00

PATIENT
  Sex: Male
  Weight: 88.984 kg

DRUGS (4)
  1. DEPAKOTE [Suspect]
     Indication: BIPOLAR DISORDER
     Dates: start: 20100811
  2. DEPAKOTE [Suspect]
     Indication: ANGER
  3. VISTERIL [Concomitant]
     Indication: MOOD ALTERED
  4. DEPAKOTE [Suspect]
     Indication: MANIA

REACTIONS (16)
  - ABDOMINAL PAIN [None]
  - DIARRHOEA [None]
  - SKIN EXFOLIATION [None]
  - BACK PAIN [None]
  - INSOMNIA [None]
  - SENSORY DISTURBANCE [None]
  - COUGH [None]
  - NECK PAIN [None]
  - WEIGHT INCREASED [None]
  - PAIN [None]
  - VOMITING [None]
  - NERVOUSNESS [None]
  - DRY SKIN [None]
  - RASH [None]
  - GASTRITIS [None]
  - INCREASED APPETITE [None]
